FAERS Safety Report 8836725 (Version 1)
Quarter: 2012Q4

REPORT INFORMATION
  Report Type: 
  Country: US (occurrence: US)
  Receive Date: 20121012
  Receipt Date: 20121012
  Transmission Date: 20130627
  Serious: Yes (Other)
  Sender: FDA-Public Use
  Company Number: US-ROCHE-1139133

PATIENT
  Age: 12 Year
  Sex: Male

DRUGS (7)
  1. PROTROPIN [Suspect]
     Indication: GROWTH HORMONE DEFICIENCY
     Route: 058
     Dates: start: 19950119
  2. PROTROPIN [Suspect]
     Route: 065
  3. RITALIN [Concomitant]
  4. DEPAKOTE [Concomitant]
     Indication: MOOD SWINGS
  5. ATENOLOL [Concomitant]
  6. MEXILETINE [Concomitant]
  7. CORGARD [Concomitant]

REACTIONS (3)
  - Ventricular tachycardia [Unknown]
  - Cardiomyopathy [Unknown]
  - Heart rate irregular [Unknown]
